FAERS Safety Report 5531394-1 (Version None)
Quarter: 2007Q4

REPORT INFORMATION
  Report Type: 
  Country: None (occurrence: None)
  Receive Date: 20071203
  Receipt Date: 20071120
  Transmission Date: 20080405
  Serious: Yes (Death, Life-Threatening, Other)
  Sender: FDA-Public Use
  Company Number: GB-JNJFOC-20071107869

PATIENT
  Sex: Female

DRUGS (10)
  1. REMICADE [Suspect]
     Indication: RHEUMATOID ARTHRITIS
     Route: 042
  2. METHOTREXATE [Concomitant]
  3. PREDNISOLONE [Concomitant]
  4. CO-DYDRAMOL [Concomitant]
  5. DICLOFENAC [Concomitant]
  6. ERGOCAL [Concomitant]
  7. FOLIC ACID [Concomitant]
  8. PHENYTOIN [Concomitant]
  9. TEGRETOL [Concomitant]
  10. ZOTON [Concomitant]

REACTIONS (1)
  - DEATH [None]
